FAERS Safety Report 5719258-1 (Version None)
Quarter: 2008Q2

REPORT INFORMATION
  Report Type: 
  Country: None (occurrence: None)
  Receive Date: 20080421
  Receipt Date: 20070913
  Transmission Date: 20081010
  Serious: Yes (Disabling)
  Sender: FDA-Public Use
  Company Number: WAES 0709USA02020

PATIENT
  Sex: Female

DRUGS (5)
  1. SINGULAIR [Suspect]
     Dosage: 10 MG/DAILY/PO
     Route: 048
     Dates: start: 20070906
  2. ALLEGRA [Concomitant]
  3. SYNTHROID [Concomitant]
  4. DOXYCYCLINE HCL [Concomitant]
  5. VENLAFAXINE HYDROCHLORIDE [Concomitant]

REACTIONS (1)
  - PLEURISY [None]
